FAERS Safety Report 5330071-X (Version None)
Quarter: 2007Q2

REPORT INFORMATION
  Report Type: 
  Country: None (occurrence: None)
  Receive Date: 20070521
  Receipt Date: 20070509
  Transmission Date: 20071010
  Serious: Yes (Congenital Anomaly)
  Sender: FDA-Public Use
  Company Number: FR-ROCHE-497078

PATIENT
  Age: 21 Year
  Sex: Female

DRUGS (5)
  1. MYCOPHENOLATE MOFETIL [Suspect]
     Indication: LUPUS NEPHRITIS
     Dosage: MAINTENANCE THERAPY
     Route: 065
  2. PERINDOPRIL [Suspect]
     Indication: DRUG USE FOR UNKNOWN INDICATION
     Route: 065
  3. PREDNISONE TAB [Concomitant]
  4. CYCLOPHOSPHAMIDE [Concomitant]
     Indication: LUPUS NEPHRITIS
     Dosage: TWO SIX MONTH COURSES (IN 2003 AND 2005).
     Route: 042
     Dates: start: 20030101, end: 20050101
  5. HYDROXYCHLOROQUINE SULFATE [Concomitant]

REACTIONS (2)
  - ABORTION INDUCED [None]
  - CONGENITAL ANOMALY [None]
